FAERS Safety Report 5003206-6 (Version None)
Quarter: 2006Q2

REPORT INFORMATION
  Report Type: 
  Country: None (occurrence: None)
  Receive Date: 20060512
  Receipt Date: 20051212
  Transmission Date: 20061013
  Serious: Yes (Hospitalization)
  Sender: FDA-Public Use
  Company Number: US-2005-020885

PATIENT
  Age: 29 Year
  Sex: Female
  Weight: 69.8 kg

DRUGS (3)
  1. LEVLEN (ETHINYLESTRADIOL, LEVONORGESTREL) COATED TABLET [Suspect]
     Indication: MENSTRUATION IRREGULAR
     Dosage: 1 TAB(S), 1X/DAY, ORAL
     Route: 048
     Dates: start: 19930101, end: 20050901
  2. ZOLOFT [Concomitant]
  3. LORAZEPAM [Concomitant]

REACTIONS (11)
  - BLOOD PRESSURE SYSTOLIC INCREASED [None]
  - FLATULENCE [None]
  - FOCAL NODULAR HYPERPLASIA [None]
  - HAEMORRHOID OPERATION [None]
  - HYPERHIDROSIS [None]
  - INSOMNIA [None]
  - MEDIAN NERVE INJURY [None]
  - NAUSEA [None]
  - PROCEDURAL PAIN [None]
  - UTERINE ENLARGEMENT [None]
  - VOMITING [None]
